FAERS Safety Report 6708288-9 (Version None)
Quarter: 2010Q2

REPORT INFORMATION
  Report Type: 
  Country: None (occurrence: None)
  Receive Date: 20100503
  Receipt Date: 20090422
  Transmission Date: 20101027
  Serious: No
  Sender: FDA-Public Use
  Company Number: US-ASTRAZENECA-2009UW10219

PATIENT
  Age: 68 Year
  Sex: Female
  Weight: 58.1 kg

DRUGS (5)
  1. NEXIUM [Suspect]
     Indication: GASTROOESOPHAGEAL REFLUX DISEASE
     Route: 048
  2. EFFEXOR [Concomitant]
  3. ANTIHISTAMINE [Concomitant]
  4. TRAZODONE HCL [Concomitant]
  5. CLONAZEPAM [Concomitant]

REACTIONS (1)
  - ABDOMINAL PAIN UPPER [None]
